FAERS Safety Report 25245264 (Version 4)
Quarter: 2025Q3

REPORT INFORMATION
  Report Type: Spontaneous
  Country: US (occurrence: US)
  Receive Date: 20250428
  Receipt Date: 20250708
  Transmission Date: 20251020
  Serious: No
  Sender: PFIZER
  Company Number: US-PFIZER INC-202500082962

PATIENT
  Age: 12 Year
  Sex: Male

DRUGS (2)
  1. GENOTROPIN [Suspect]
     Active Substance: SOMATROPIN
     Dosage: 1 MG, DAILY
     Dates: start: 202502
  2. GENOTROPIN [Suspect]
     Active Substance: SOMATROPIN
     Dates: start: 202506

REACTIONS (3)
  - Device difficult to use [Unknown]
  - Device delivery system issue [Unknown]
  - Device defective [Unknown]

NARRATIVE: CASE EVENT DATE: 20250416
